FAERS Safety Report 6322020-2 (Version None)
Quarter: 2009Q3

REPORT INFORMATION
  Report Type: 
  Country: None (occurrence: None)
  Receive Date: 20090814
  Receipt Date: 20090406
  Transmission Date: 20100115
  Serious: Yes (Life-Threatening, Other)
  Sender: FDA-Public Use
  Company Number: 58790

PATIENT
  Age: 40 Year
  Sex: Male
  Weight: 68 kg

DRUGS (1)
  1. ETOPOSIDE [Suspect]
     Indication: ACUTE MYELOID LEUKAEMIA
     Dosage: 140MG 1X/ DAY IV
     Route: 042
     Dates: start: 20061020

REACTIONS (3)
  - LABORATORY TEST ABNORMAL [None]
  - LEUKOPENIA [None]
  - THROMBOCYTOPENIA [None]
